FAERS Safety Report 18362005 (Version 1)
Quarter: 2020Q4

REPORT INFORMATION
  Report Type: Spontaneous
  Country: US (occurrence: US)
  Receive Date: 20201008
  Receipt Date: 20201008
  Transmission Date: 20210114
  Serious: Yes (Death, Other)
  Sender: FDA-Public Use
  Company Number: US-ASTRAZENECA-2020SF28763

PATIENT

DRUGS (2)
  1. PRILOSEC [Suspect]
     Active Substance: OMEPRAZOLE MAGNESIUM
     Dosage: BEGINNING IN OR BEFORE 2001 THROUGH APPROXIMATELY MARCH 2019
     Route: 048
  2. PRILOSEC OTC [Suspect]
     Active Substance: OMEPRAZOLE MAGNESIUM
     Dosage: BEGINNING IN OR BEFORE 2001 THROUGH APPROXIMATELY MARCH 2019
     Route: 048

REACTIONS (3)
  - Death [Fatal]
  - Rebound acid hypersecretion [Unknown]
  - Gastric cancer [Unknown]
